FAERS Safety Report 12665814 (Version 2)
Quarter: 2016Q3

REPORT INFORMATION
  Report Type: Spontaneous
  Country: CN (occurrence: CN)
  Receive Date: 20160818
  Receipt Date: 20160907
  Transmission Date: 20161109
  Serious: Yes (Hospitalization, Other)
  Sender: FDA-Public Use
  Company Number: CN-GILEAD-2016-0228224

PATIENT
  Age: 46 Year
  Sex: Male
  Weight: 81 kg

DRUGS (2)
  1. AMLODIPINE MALEATE [Suspect]
     Active Substance: AMLODIPINE MALEATE
     Indication: HYPERTENSION
     Dosage: UNK
     Route: 048
     Dates: end: 20160728
  2. VIREAD [Suspect]
     Active Substance: TENOFOVIR DISOPROXIL FUMARATE
     Indication: CHRONIC HEPATITIS B
     Dosage: 1 DF, QD
     Route: 048
     Dates: start: 20160714

REACTIONS (8)
  - Diabetes mellitus [Unknown]
  - Abdominal pain [Recovering/Resolving]
  - Blood pressure decreased [Unknown]
  - Weight decreased [Unknown]
  - Fatigue [Recovering/Resolving]
  - Polyuria [Unknown]
  - Polydipsia [Unknown]
  - Hyperphagia [Unknown]

NARRATIVE: CASE EVENT DATE: 20160725
